FAERS Safety Report 18639941 (Version 1)
Quarter: 2020Q4

REPORT INFORMATION
  Report Type: Spontaneous
  Country: US (occurrence: US)
  Receive Date: 20201220
  Receipt Date: 20201220
  Transmission Date: 20210114
  Serious: No
  Sender: FDA-Public Use
  Company Number: US-PACIRA-202000035

PATIENT

DRUGS (4)
  1. BUPIVACAINE. [Suspect]
     Active Substance: BUPIVACAINE
     Indication: NERVE BLOCK
     Dosage: 10 CC WITH EXPAREL 133 MG IN NERVE BLOCK
     Route: 065
  2. EXPAREL [Suspect]
     Active Substance: BUPIVACAINE
     Indication: NERVE BLOCK
     Dosage: ANOTHER SHOT OF 133 MG WITH 15 ML OF BUPIVACAINE IN OR??
  3. EXPAREL [Suspect]
     Active Substance: BUPIVACAINE
     Indication: NERVE BLOCK
     Dosage: 133 MG WITH 10 CC OF BUPIVACAINE 0.5% AS NERVE BLOCK??
     Route: 065
  4. BUPIVACAINE. [Suspect]
     Active Substance: BUPIVACAINE
     Indication: NERVE BLOCK
     Dosage: ANOTHER SHOT OF 15 ML WITH EXPAREL 133 MG IN OR

REACTIONS (3)
  - Extra dose administered [Unknown]
  - Off label use [Unknown]
  - No adverse event [Unknown]
